FAERS Safety Report 13252008 (Version 1)
Quarter: 2017Q1

REPORT INFORMATION
  Report Type: Spontaneous
  Country: FR (occurrence: FR)
  Receive Date: 20170220
  Receipt Date: 20170220
  Transmission Date: 20170428
  Serious: Yes (Death)
  Sender: FDA-Public Use
  Company Number: FR-HORIZON-BUP-0017-2017

PATIENT
  Age: 43 Year
  Sex: Male

DRUGS (1)
  1. AMMONAPS [Suspect]
     Active Substance: SODIUM PHENYLBUTYRATE
     Indication: UREA CYCLE ENZYME DEFICIENCY

REACTIONS (2)
  - Urea cycle enzyme deficiency [Fatal]
  - Disease progression [Fatal]

NARRATIVE: CASE EVENT DATE: 201701
